FAERS Safety Report 18511645 (Version 1)
Quarter: 2020Q4

REPORT INFORMATION
  Report Type: Spontaneous
  Country: CA (occurrence: CA)
  Receive Date: 20201117
  Receipt Date: 20201117
  Transmission Date: 20210114
  Serious: Yes (Death)
  Sender: FDA-Public Use
  Company Number: CA-PFIZER INC-2020453207

PATIENT
  Age: 79 Year
  Sex: Male

DRUGS (6)
  1. SOFLAX [DOCUSATE SODIUM] [Concomitant]
     Dosage: 100 MG TAKE 1 OR 2 TABLETS 3 TIMES A DAY AS REQUIRED
     Route: 048
  2. SENOKOT [Concomitant]
     Active Substance: SENNOSIDES
     Dosage: 8.6 MG TAKE 1 OR 2 TABLETS 3 TIMES A DAY AS REQUIRED
  3. LEVOFLOXACIN ACTAVIS [Concomitant]
     Active Substance: LEVOFLOXACIN
     Dosage: 500 MG, 1X/DAY
     Route: 048
  4. PANTOPRAZOLE SODIUM. [Concomitant]
     Active Substance: PANTOPRAZOLE SODIUM
     Dosage: 40 MG, 1X/DAY
     Route: 048
  5. ONDANSETRON. [Concomitant]
     Active Substance: ONDANSETRON
     Dosage: 8 MG TAKE 1 TABLET BY MOUTH ON CHEMOTHERAPY DAYS 30-60 MINUTES BEFORE TREATMENT
     Route: 048
  6. DAURISMO [Suspect]
     Active Substance: GLASDEGIB
     Dosage: 100 MG, DAILY
     Dates: start: 20200917

REACTIONS (1)
  - Death [Fatal]
